FAERS Safety Report 10257315 (Version 1)
Quarter: 2014Q2

REPORT INFORMATION
  Report Type: Spontaneous
  Country: US (occurrence: None)
  Receive Date: 20140620
  Receipt Date: 20140620
  Transmission Date: 20141212
  Serious: Yes (Hospitalization)
  Sender: FDA-Public Use
  Company Number: SYM-2014-21886

PATIENT
  Age: 61 Year
  Sex: Female
  Weight: 62.3 kg

DRUGS (19)
  1. FLUOROURACIL [Suspect]
     Indication: PANCREATIC CARCINOMA
     Route: 040
     Dates: start: 20140206, end: 20140206
  2. IRINOTECAN HYDROCHLORIDE [Suspect]
     Indication: PANCREATIC CARCINOMA
     Route: 042
     Dates: start: 20140206, end: 20140206
  3. OXALIPLATIN [Suspect]
     Indication: PANCREATIC CARCINOMA
     Route: 042
     Dates: start: 20140206, end: 20140206
  4. LEUCOVORIN [Suspect]
     Indication: PANCREATIC CARCINOMA
     Route: 042
     Dates: start: 20140206, end: 20140206
  5. LEUCOVORIN [Suspect]
     Route: 042
     Dates: start: 20140206, end: 20140206
  6. ACETAMINOPHEN (PARACETAMOL) [Concomitant]
  7. ALEVE (NAPROXEN SODIUM) [Concomitant]
  8. CYCLOBENZAPRINE (CYCLOBENZAPRINE) [Concomitant]
  9. DEXAMETHASONE (DEXAMETHASONE) [Concomitant]
  10. DULCOLAX (BISACODYL) [Concomitant]
  11. EXCEDRIN (VINCENTS) (ACETYLSALICYLIC ACID, CAFFEINE, SALICYLAMIDE) [Concomitant]
  12. IMITREX (SUMATRIPTAN SUCCINATE) [Concomitant]
  13. PRILOCAINE (PRILOCAINE) [Concomitant]
  14. LIDOCAINE (LIDOCAINE) [Concomitant]
  15. OMEPRAZOLE (OMEPRAZOLE) [Concomitant]
  16. ONDANSETRON (ONDANSETRON) [Concomitant]
  17. PROCHLORPERAZINE (PROCHLORPERAZINE) [Concomitant]
  18. SENNA ALEXANDRINA (SENNA ALEXANDRINA) [Concomitant]
  19. SIMVASTATIN (SIMVASTATIN) [Concomitant]

REACTIONS (4)
  - Nausea [None]
  - Faeces soft [None]
  - Dehydration [None]
  - Blood sodium decreased [None]
